FAERS Safety Report 6698060-0 (Version None)
Quarter: 2010Q2

REPORT INFORMATION
  Report Type: 
  Country: None (occurrence: None)
  Receive Date: 20100426
  Receipt Date: 20100426
  Transmission Date: 20101027
  Serious: Yes (Other)
  Sender: FDA-Public Use
  Company Number: None

PATIENT
  Sex: Female

DRUGS (4)
  1. CREST WHITESTRIPS, ADVANCED SEAL  HYDROGEN PEROXIDE 9.5%) STRIP, 1 STR [Suspect]
     Dosage: 1 STRIP 1/DAY INTRAORAL
     Route: 048
     Dates: start: 20100216, end: 20100216
  2. OXYCONTIN [Concomitant]
  3. FENTANYL [Concomitant]
  4. ^NOVOLIN^ [Concomitant]

REACTIONS (4)
  - DRUG INTOLERANCE [None]
  - IMMUNE SYSTEM DISORDER [None]
  - MULTIPLE SCLEROSIS RELAPSE [None]
  - UNEVALUABLE EVENT [None]
